FAERS Safety Report 9701177 (Version 1)
Quarter: 2013Q4

REPORT INFORMATION
  Report Type: Spontaneous
  Country: US (occurrence: US)
  Receive Date: 20131121
  Receipt Date: 20131121
  Transmission Date: 20140711
  Serious: No
  Sender: FDA-Public Use
  Company Number: US-GILEAD-2008-0016004

PATIENT
  Sex: Female

DRUGS (5)
  1. LETAIRIS [Suspect]
     Route: 048
     Dates: start: 20080312, end: 20080408
  2. VENTAVIS [Concomitant]
  3. NORVASC [Concomitant]
     Route: 048
  4. FUROSEMIDE [Concomitant]
  5. DIGOXIN [Concomitant]

REACTIONS (4)
  - Vision blurred [None]
  - Confusional state [None]
  - Dyspnoea [None]
  - Local swelling [None]
